FAERS Safety Report 4594747-4 (Version None)
Quarter: 2005Q1

REPORT INFORMATION
  Report Type: 
  Country: None (occurrence: None)
  Receive Date: 20050301
  Receipt Date: 20050222
  Transmission Date: 20050727
  Serious: Yes (Other)
  Sender: FDA-Public Use
  Company Number: PHBS2005JP02746

PATIENT
  Age: 17 Year
  Sex: Female

DRUGS (3)
  1. TACROLIMUS [Concomitant]
     Dosage: 3 MG/DAY
     Route: 042
     Dates: start: 20050215
  2. STEROIDS NOS [Concomitant]
     Dosage: 500 MG/DAY
     Route: 042
     Dates: start: 20050216
  3. SIMULECT [Suspect]
     Indication: RENAL TRANSPLANT
     Dosage: 20 MG, ONCE/SINGLE
     Route: 042
     Dates: start: 20050216, end: 20050216

REACTIONS (4)
  - BLOOD PRESSURE DECREASED [None]
  - OBSTRUCTIVE AIRWAYS DISORDER [None]
  - RASH [None]
  - SHOCK [None]
